FAERS Safety Report 6071431-1 (Version None)
Quarter: 2009Q1

REPORT INFORMATION
  Report Type: 
  Country: None (occurrence: None)
  Receive Date: 20090204
  Receipt Date: 20090120
  Transmission Date: 20090719
  Serious: Yes (Life-Threatening, Hospitalization)
  Sender: FDA-Public Use
  Company Number: 8041515

PATIENT
  Age: 39 Year
  Sex: Female
  Weight: 72 kg

DRUGS (7)
  1. CIMZIA [Suspect]
     Indication: CROHN'S DISEASE
     Dosage: 400 MG SC
     Route: 058
     Dates: start: 20081101
  2. CELEBREX [Concomitant]
  3. CIPRO [Concomitant]
  4. SULFASALAZINE [Concomitant]
  5. SEROQUEL [Concomitant]
  6. LEXAPRO [Concomitant]
  7. KLONOPIN [Concomitant]

REACTIONS (5)
  - ABDOMINAL PAIN UPPER [None]
  - DEPRESSION [None]
  - DIARRHOEA [None]
  - NAUSEA [None]
  - SUICIDE ATTEMPT [None]
